FAERS Safety Report 4485034-3 (Version None)
Quarter: 2004Q3

REPORT INFORMATION
  Report Type: 
  Country: None (occurrence: None)
  Receive Date: 20040921
  Receipt Date: 20030721
  Transmission Date: 20050211
  Serious: Yes (Hospitalization)
  Sender: FDA-Public Use
  Company Number: 163-20785-03060582

PATIENT
  Age: 45 Year
  Sex: Male
  Weight: 86.1 kg

DRUGS (13)
  1. THALOMID [Suspect]
     Indication: PANCREATIC CARCINOMA
     Dosage: 200 MG, DAILY, ORAL
     Route: 048
     Dates: start: 20030527, end: 20030602
  2. GEMCITABINE (GEMCITABINE) [Suspect]
     Indication: PANCREATIC CARCINOMA
     Dosage: 500 MG/M2
     Dates: start: 20030601, end: 20030601
  3. OXYCONTIN [Concomitant]
  4. OXYCODONE (OXYCODONE) [Concomitant]
  5. COLACE (DOCUSATE SODIUM) [Concomitant]
  6. ZANTAC [Concomitant]
  7. CELEBREX [Concomitant]
  8. XANAX [Concomitant]
  9. PROMETHAZINE [Concomitant]
  10. FENTANYL [Concomitant]
  11. RITUXAN [Concomitant]
  12. LEVAQUIN [Concomitant]
  13. COUMDAIN (WARFARIN) [Concomitant]

REACTIONS (15)
  - ALANINE AMINOTRANSFERASE INCREASED [None]
  - ASPARTATE AMINOTRANSFERASE INCREASED [None]
  - ASTHENIA [None]
  - BACTERAEMIA [None]
  - BLOOD ALKALINE PHOSPHATASE INCREASED [None]
  - BLOOD BILIRUBIN INCREASED [None]
  - DIZZINESS [None]
  - DYSPNOEA [None]
  - HAEMOGLOBIN DECREASED [None]
  - HYPOTENSION [None]
  - MALAISE [None]
  - PYREXIA [None]
  - SEPSIS [None]
  - STENT OCCLUSION [None]
  - TRANSAMINASES INCREASED [None]
